FAERS Safety Report 8262370-6 (Version None)
Quarter: 2012Q1

REPORT INFORMATION
  Report Type: 
  Country: None (occurrence: None)
  Receive Date: 20120327
  Receipt Date: 20090515
  Transmission Date: 20120608
  Serious: Yes (Other)
  Sender: FDA-Public Use
  Company Number: PHEH2009US04438

PATIENT
  Sex: Female

DRUGS (1)
  1. GLEEVEC [Suspect]
     Indication: CHRONIC MYELOID LEUKAEMIA
     Dosage: ORAL
     Route: 048
     Dates: start: 20080701

REACTIONS (9)
  - PLEURAL EFFUSION [None]
  - MYOSITIS [None]
  - PERICARDIAL EFFUSION [None]
  - STRESS [None]
  - ASPIRATION PLEURAL CAVITY [None]
  - DYSPNOEA [None]
  - PAIN [None]
  - URTICARIA [None]
  - HYPERSENSITIVITY [None]
